FAERS Safety Report 15550650 (Version 6)
Quarter: 2020Q1

REPORT INFORMATION
  Report Type: Spontaneous
  Country: US (occurrence: US)
  Receive Date: 20181025
  Receipt Date: 20200326
  Transmission Date: 20200409
  Serious: No
  Sender: FDA-Public Use
  Company Number: US-SA-2018SA293608

PATIENT
  Age: 67 Year
  Sex: Male

DRUGS (8)
  1. ROSUVASTATIN CALCIUM. [Suspect]
     Active Substance: ROSUVASTATIN CALCIUM
     Dosage: 40 MG
  2. PRALUENT [Suspect]
     Active Substance: ALIROCUMAB
     Dosage: 75 MG, QOW
  3. PRALUENT [Suspect]
     Active Substance: ALIROCUMAB
     Dosage: 75 MG, QM
     Dates: start: 201907
  4. METOPROLOL SALT NOT SPECIFIED [Suspect]
     Active Substance: METOPROLOL
  5. PRALUENT [Suspect]
     Active Substance: ALIROCUMAB
     Dosage: 75 MG, QM
     Route: 058
  6. PRALUENT [Suspect]
     Active Substance: ALIROCUMAB
     Dosage: 75 MG, QM
     Route: 058
     Dates: start: 2018
  7. PRALUENT [Suspect]
     Active Substance: ALIROCUMAB
     Indication: BLOOD CHOLESTEROL INCREASED
     Dosage: 150 MG
     Route: 058
     Dates: start: 201802
  8. PRALUENT [Suspect]
     Active Substance: ALIROCUMAB
     Dosage: 75 MG, QM
     Route: 058
     Dates: start: 2018

REACTIONS (23)
  - Low density lipoprotein increased [Recovered/Resolved]
  - Feeling abnormal [Recovering/Resolving]
  - Abdominal pain [Unknown]
  - Pyrexia [Unknown]
  - Depression [Unknown]
  - Palpitations [Unknown]
  - Blood glucose decreased [Unknown]
  - Blood cholesterol decreased [Recovered/Resolved]
  - Asthenia [Unknown]
  - Product use issue [Unknown]
  - Musculoskeletal chest pain [Unknown]
  - Anxiety [Unknown]
  - Oropharyngeal pain [Unknown]
  - Condition aggravated [Not Recovered/Not Resolved]
  - Sinus congestion [Not Recovered/Not Resolved]
  - Insomnia [Recovered/Resolved]
  - Blood pressure increased [Unknown]
  - Nasopharyngitis [Unknown]
  - Somnolence [Not Recovered/Not Resolved]
  - Hunger [Recovering/Resolving]
  - Exercise tolerance decreased [Unknown]
  - Blood cholesterol increased [Unknown]
  - Confusional state [Unknown]

NARRATIVE: CASE EVENT DATE: 2018
